FAERS Safety Report 5067332-8 (Version None)
Quarter: 2006Q3

REPORT INFORMATION
  Report Type: 
  Country: None (occurrence: None)
  Receive Date: 20060714
  Receipt Date: 20060613
  Transmission Date: 20061208
  Serious: No
  Sender: FDA-Public Use
  Company Number: 2006SP002418

PATIENT
  Age: 43 Year
  Sex: Female
  Weight: 68.0396 kg

DRUGS (4)
  1. LUNESTA [Suspect]
     Dosage: 1 MG;1X;ORAL
     Route: 048
     Dates: start: 20050101, end: 20050101
  2. HORMONES AND RELATED AGENTS [Concomitant]
  3. NEXIUM [Concomitant]
  4. WELLBUTRIN [Concomitant]

REACTIONS (1)
  - DYSGEUSIA [None]
